FAERS Safety Report 8592473-8 (Version None)
Quarter: 2012Q3

REPORT INFORMATION
  Report Type: 
  Country: None (occurrence: None)
  Receive Date: 20120814
  Receipt Date: 20120607
  Transmission Date: 20120928
  Serious: Yes (Hospitalization)
  Sender: FDA-Public Use
  Company Number: JP-009507513-2012SP026227

PATIENT

DRUGS (17)
  1. REBETOL [Suspect]
     Indication: HEPATITIS C
     Dosage: 600 MG, QD
     Route: 048
     Dates: start: 20120406, end: 20120425
  2. TELAVIC [Suspect]
     Route: 048
     Dates: start: 20120515, end: 20120521
  3. TELAVIC [Suspect]
     Route: 048
     Dates: start: 20120522, end: 20120523
  4. PEG-INTRON [Suspect]
     Dosage: 50MCG
     Route: 058
     Dates: start: 20120606
  5. OLMESARTAN MEDOXOMIL [Concomitant]
     Indication: PRODUCT USED FOR UNKNOWN INDICATION
     Dosage: UPDATE (24MAY2012) FORMLATION: POR
     Route: 048
  6. PEG-INTRON [Suspect]
     Indication: HEPATITIS C
     Dosage: 60 MCG/WEEK
     Route: 058
     Dates: start: 20120406, end: 20120502
  7. REBETOL [Suspect]
     Dosage: 400 MG, QD
     Route: 048
     Dates: start: 20120426, end: 20120507
  8. OLMESARTAN MEDOXOMIL [Concomitant]
     Route: 048
  9. ALLOPURINOL [Concomitant]
     Indication: PRODUCT USED FOR UNKNOWN INDICATION
     Dosage: UPDATE (24MAY2012)
     Route: 048
     Dates: start: 20120410
  10. PEG-INTRON [Suspect]
     Dosage: 50 MCG/WEEK
     Route: 058
     Dates: end: 20120518
  11. ANTIVIRAL (UNSPECIFIED) [Suspect]
     Dosage: 750 MG, QD
     Route: 048
     Dates: start: 20120515
  12. TELAVIC [Suspect]
     Indication: HEPATITIS C
     Route: 048
     Dates: start: 20120406, end: 20120514
  13. REBETOL [Suspect]
     Route: 048
     Dates: start: 20120614
  14. ANTIVIRAL (UNSPECIFIED) [Suspect]
     Indication: HEPATITIS C
     Dosage: 1500 MG, QD
     Route: 048
     Dates: start: 20120406, end: 20120514
  15. ANTIVIRAL (UNSPECIFIED) [Suspect]
     Dosage: 1500 MG, QD
     Route: 048
     Dates: start: 20120522, end: 20120524
  16. PEG-INTRON [Suspect]
     Dosage: 40 MCG/WEEK
     Route: 058
     Dates: start: 20120511
  17. REBETOL [Suspect]
     Dosage: 200 MG, QD
     Route: 048
     Dates: end: 20120524

REACTIONS (1)
  - MALAISE [None]
